FAERS Safety Report 10136827 (Version 1)
Quarter: 2014Q2

REPORT INFORMATION
  Report Type: Spontaneous
  Country: GB (occurrence: None)
  Receive Date: 20140425
  Receipt Date: 20140425
  Transmission Date: 20141212
  Serious: Yes (Hospitalization, Other)
  Sender: FDA-Public Use
  Company Number: AUR-APL-2014-04714

PATIENT
  Sex: Female

DRUGS (1)
  1. AMLODIPINE (AMLODIPINE) [Suspect]
     Indication: SUBARACHNOID HAEMORRHAGE
     Route: 048
     Dates: start: 20131205

REACTIONS (2)
  - Wrong drug administered [None]
  - Orthostatic hypotension [None]
